FAERS Safety Report 8414569-3 (Version None)
Quarter: 2012Q2

REPORT INFORMATION
  Report Type: 
  Country: None (occurrence: None)
  Receive Date: 20120605
  Receipt Date: 20120604
  Transmission Date: 20120825
  Serious: Yes (Hospitalization)
  Sender: FDA-Public Use
  Company Number: IT-PFIZER INC-2012117653

PATIENT
  Age: 28 Year
  Sex: Female

DRUGS (4)
  1. XANAX [Suspect]
     Indication: DEPRESSION
     Dosage: 1 MG, UNK
     Route: 048
  2. ESCITALOPRAM [Suspect]
     Indication: DEPRESSION
     Dosage: 10 MG, UNK
     Route: 048
  3. XANAX [Suspect]
     Dosage: 6 DF, UNK
     Dates: start: 20120511
  4. LEXOTAN [Suspect]
     Dosage: 20 DF, UNK
     Route: 048
     Dates: start: 20120511

REACTIONS (4)
  - HYPOTENSION [None]
  - BRADYKINESIA [None]
  - INTENTIONAL OVERDOSE [None]
  - BRADYPHRENIA [None]
